FAERS Safety Report 8550976 (Version 3)
Quarter: 2012Q4

REPORT INFORMATION
  Report Type: 
  Country: VE (occurrence: VE)
  Receive Date: 20120508
  Receipt Date: 20121001
  Transmission Date: 20130627
  Serious: Yes (Death)
  Sender: FDA-Public Use
  Company Number: VE-PFIZER INC-2012109830

PATIENT
  Age: 79 Year
  Sex: Male

DRUGS (2)
  1. ZOLOFT [Suspect]
     Dosage: 50 mg, UNK
     Route: 048
  2. LIPITOR [Concomitant]
     Dosage: UNK

REACTIONS (1)
  - Infection [Fatal]
